FAERS Safety Report 5574743-0 (Version None)
Quarter: 2007Q4

REPORT INFORMATION
  Report Type: 
  Country: None (occurrence: None)
  Receive Date: 20071227
  Receipt Date: 20071104
  Transmission Date: 20080405
  Serious: Yes (Hospitalization, Other)
  Sender: FDA-Public Use
  Company Number: US-PURDUE-USA_2007_0030755

PATIENT
  Sex: Female

DRUGS (1)
  1. OXYCONTIN [Suspect]
     Indication: CLAVICLE FRACTURE
     Dosage: UNK MG, BID
     Route: 048
     Dates: start: 20011001, end: 20051001

REACTIONS (4)
  - DRUG DEPENDENCE [None]
  - GASTRIC ULCER HAEMORRHAGE [None]
  - HAEMATEMESIS [None]
  - WITHDRAWAL SYNDROME [None]
